FAERS Safety Report 5452987-6 (Version None)
Quarter: 2007Q3

REPORT INFORMATION
  Report Type: 
  Country: None (occurrence: None)
  Receive Date: 20070914
  Receipt Date: 20070903
  Transmission Date: 20080115
  Serious: Yes (Life-Threatening, Hospitalization)
  Sender: FDA-Public Use
  Company Number: FR-PFIZER INC-2007073674

PATIENT
  Sex: Female

DRUGS (5)
  1. TRIFLUCAN [Suspect]
     Route: 048
     Dates: start: 20070717, end: 20070723
  2. TRIFLUCAN [Suspect]
     Dosage: TEXT:200MG/5ML TWICE DAILY
     Route: 048
     Dates: start: 20070724, end: 20070725
  3. CLAVENTIN [Concomitant]
     Route: 042
     Dates: start: 20070629, end: 20070725
  4. AUGMENTIN '125' [Concomitant]
     Route: 048
     Dates: start: 20070716, end: 20070717
  5. VANCOMYCIN [Concomitant]
     Route: 042
     Dates: start: 20070609, end: 20070615

REACTIONS (1)
  - DRUG RASH WITH EOSINOPHILIA AND SYSTEMIC SYMPTOMS [None]
